FAERS Safety Report 13656013 (Version 1)
Quarter: 2017Q2

REPORT INFORMATION
  Report Type: Report from Study
  Country: BR (occurrence: BR)
  Receive Date: 20170615
  Receipt Date: 20170615
  Transmission Date: 20170830
  Serious: Yes (Other)
  Sender: FDA-Public Use
  Company Number: BR-EMD SERONO-8109495

PATIENT
  Sex: Female

DRUGS (4)
  1. REBIF [Suspect]
     Active Substance: INTERFERON BETA-1A
     Dosage: ON THE 11TH INJECTION, THE PATIENT STARTED FULL DOSE OF REBIF
     Route: 058
  2. REBIF [Suspect]
     Active Substance: INTERFERON BETA-1A
     Dosage: AFTER 5 SYRINGES THE PATIENT STARTED TO RECEIVED 50 % OF THE MEDICATION
     Route: 058
  3. REBIF [Suspect]
     Active Substance: INTERFERON BETA-1A
     Indication: MULTIPLE SCLEROSIS
     Dosage: STARTED 20 % THE MEDICATION
     Route: 058
     Dates: start: 20160814
  4. REBIF [Suspect]
     Active Substance: INTERFERON BETA-1A
     Dosage: 50% OF THE REBIF DOSE AGAIN
     Route: 058
     Dates: start: 20160920, end: 201704

REACTIONS (8)
  - Speech disorder [Unknown]
  - Headache [Unknown]
  - Fear of death [Unknown]
  - Feeling abnormal [Unknown]
  - Somnolence [Unknown]
  - Cough [Not Recovered/Not Resolved]
  - Feeling cold [Not Recovered/Not Resolved]
  - Arrhythmia [Recovered/Resolved]

NARRATIVE: CASE EVENT DATE: 2016
